FAERS Safety Report 5412693-0 (Version None)
Quarter: 2007Q3

REPORT INFORMATION
  Report Type: 
  Country: None (occurrence: None)
  Receive Date: 20070813
  Receipt Date: 20070802
  Transmission Date: 20080115
  Serious: Yes (Other)
  Sender: FDA-Public Use
  Company Number: US-SHR-US-2006-034395

PATIENT
  Age: 36 Year
  Sex: Female
  Weight: 76.19 kg

DRUGS (3)
  1. BETASERON [Suspect]
     Indication: RELAPSING-REMITTING MULTIPLE SCLEROSIS
     Dosage: 8 MIU, EVERY 2D
     Route: 058
     Dates: start: 20041029
  2. LIPITOR [Concomitant]
     Dosage: 20 MG/D, QD
  3. DIAZEPAM [Concomitant]
     Dosage: 2 MG, 2X/DAY

REACTIONS (3)
  - CATARACT [None]
  - MUSCLE SPASMS [None]
  - VISUAL DISTURBANCE [None]
